FAERS Safety Report 4902967-1 (Version None)
Quarter: 2006Q1

REPORT INFORMATION
  Report Type: 
  Country: None (occurrence: None)
  Receive Date: 20060207
  Receipt Date: 20060202
  Transmission Date: 20060701
  Serious: Yes (Other)
  Sender: FDA-Public Use
  Company Number: 2006AP00557

PATIENT
  Age: 88 Year
  Weight: 42 kg

DRUGS (1)
  1. MEROPENEM [Suspect]

REACTIONS (1)
  - HEPATIC FUNCTION ABNORMAL [None]
